FAERS Safety Report 10764143 (Version 2)
Quarter: 2015Q1

REPORT INFORMATION
  Report Type: Spontaneous
  Country: GB (occurrence: GB)
  Receive Date: 20150204
  Receipt Date: 20150226
  Transmission Date: 20150721
  Serious: Yes (Hospitalization)
  Sender: FDA-Public Use
  Company Number: GB-ABBVIE-15K-167-1341628-00

PATIENT
  Age: 47 Year
  Sex: Male
  Weight: 90.5 kg

DRUGS (1)
  1. HUMIRA [Suspect]
     Active Substance: ADALIMUMAB
     Indication: PSORIATIC ARTHROPATHY
     Route: 058
     Dates: start: 201304, end: 201409

REACTIONS (9)
  - Cough [Recovered/Resolved]
  - Pyrexia [Recovered/Resolved]
  - Interstitial lung disease [Recovered/Resolved]
  - Pulmonary alveolar haemorrhage [Unknown]
  - Alveolitis [Unknown]
  - Organising pneumonia [Recovered/Resolved]
  - Dyspnoea [Recovered/Resolved]
  - Infection [Unknown]
  - Pericardial disease [Unknown]

NARRATIVE: CASE EVENT DATE: 201407
